FAERS Safety Report 7076187-1 (Version None)
Quarter: 2010Q4

REPORT INFORMATION
  Report Type: 
  Country: None (occurrence: None)
  Receive Date: 20101101
  Receipt Date: 20101015
  Transmission Date: 20110411
  Serious: Yes (Hospitalization)
  Sender: FDA-Public Use
  Company Number: US-BAYER-201014565NA

PATIENT
  Age: 48 Year
  Sex: Female
  Weight: 57 kg

DRUGS (14)
  1. YASMIN [Suspect]
     Route: 048
     Dates: start: 20070901
  2. YAZ [Suspect]
     Indication: MENSTRUAL CYCLE MANAGEMENT
     Route: 048
     Dates: start: 20070801, end: 20080201
  3. PROZAC [Concomitant]
     Indication: DEPRESSION
  4. FLUOXETINE HYDROCHLORIDE [Concomitant]
     Indication: DEPRESSION
     Route: 048
  5. VITAMIN E [Concomitant]
  6. MULTI-VITAMINS [Concomitant]
  7. GINKO BILOBA [Concomitant]
  8. CALCIUM [Concomitant]
  9. GLUCOSAMINE [Concomitant]
  10. TYLENOL W/ CODEINE NO. 3 [Concomitant]
  11. VALTREX [Concomitant]
  12. ALDARA [Concomitant]
  13. CARAC [Concomitant]
  14. DENAVIR [Concomitant]

REACTIONS (6)
  - CHEST DISCOMFORT [None]
  - DYSPNOEA [None]
  - MOOD ALTERED [None]
  - PAIN [None]
  - PULMONARY EMBOLISM [None]
  - PULMONARY INFARCTION [None]
